FAERS Safety Report 9099198 (Version 1)
Quarter: 2013Q1

REPORT INFORMATION
  Report Type: Spontaneous
  Country: US (occurrence: US)
  Receive Date: 20130214
  Receipt Date: 20130214
  Transmission Date: 20140127
  Serious: No
  Sender: FDA-Public Use
  Company Number: US-COVIDIEN/TYCO HEALTHCARE/MALLINCKRODT-T201300167

PATIENT
  Age: 61 Year
  Sex: Male
  Weight: 71.2 kg

DRUGS (6)
  1. FENTANYL TRANSDERMAL SYSTEM [Suspect]
     Indication: PAIN
     Dosage: 75 MCG/HR, Q 72 HRS
     Route: 062
     Dates: start: 20130111
  2. HYDROCODONE W/ACETAMINOPHEN [Concomitant]
     Indication: BREAKTHROUGH PAIN
     Dosage: 10/325 MG
     Dates: end: 20130110
  3. ZOLOFT [Concomitant]
     Indication: DEPRESSION
     Dosage: 50 MG
  4. XANAX [Concomitant]
     Indication: ANXIETY
     Dosage: UNK
  5. LISINOPRIL [Concomitant]
     Indication: BLOOD PRESSURE INCREASED
     Dosage: UNK
  6. HYDROCHLOROTHIAZIDE [Concomitant]
     Indication: BLOOD PRESSURE INCREASED
     Dosage: UNK

REACTIONS (3)
  - Dizziness [Recovered/Resolved]
  - Drug effect increased [Recovered/Resolved]
  - Inappropriate schedule of drug administration [Not Recovered/Not Resolved]
